FAERS Safety Report 9400534 (Version 3)
Quarter: 2014Q1

REPORT INFORMATION
  Report Type: Spontaneous
  Country: US (occurrence: US)
  Receive Date: 20130715
  Receipt Date: 20140311
  Transmission Date: 20141002
  Serious: Yes (Hospitalization)
  Sender: FDA-Public Use
  Company Number: US-GLAXOSMITHKLINE-A1032281A

PATIENT
  Age: 42 Year
  Sex: Male

DRUGS (1)
  1. AVANDIA [Suspect]
     Indication: DIABETES MELLITUS
     Route: 048
     Dates: start: 200111, end: 200610

REACTIONS (5)
  - Myocardial infarction [Unknown]
  - Cardiac failure congestive [Unknown]
  - Stent placement [Unknown]
  - Coronary artery disease [Unknown]
  - Cardiomegaly [Unknown]
